FAERS Safety Report 9551332 (Version 2)
Quarter: 2013Q4

REPORT INFORMATION
  Report Type: Spontaneous
  Country: JP (occurrence: JP)
  Receive Date: 20130925
  Receipt Date: 20131016
  Transmission Date: 20140711
  Serious: Yes (Other)
  Sender: FDA-Public Use
  Company Number: JP-BRISTOL-MYERS SQUIBB COMPANY-19421155

PATIENT
  Age: 75 Year
  Sex: Female
  Weight: 71 kg

DRUGS (3)
  1. ELIQUIS [Suspect]
     Indication: CEREBROVASCULAR ACCIDENT PROPHYLAXIS
     Dosage: TABS.
     Route: 048
     Dates: start: 20130722, end: 20130804
  2. AMLODIPINE [Concomitant]
     Dosage: TABS.?ONGOING.
     Route: 048
  3. AMARYL [Concomitant]
     Dosage: TABS.?ONGOING.
     Route: 048

REACTIONS (1)
  - Cerebrovascular accident [Not Recovered/Not Resolved]
